FAERS Safety Report 4691327-7 (Version None)
Quarter: 2005Q2

REPORT INFORMATION
  Report Type: 
  Country: None (occurrence: None)
  Receive Date: 20050610
  Receipt Date: 20041115
  Transmission Date: 20051028
  Serious: Yes (Hospitalization)
  Sender: FDA-Public Use
  Company Number: 2004222914US

PATIENT
  Age: 62 Year
  Sex: Female
  Weight: 90.25 kg

DRUGS (11)
  1. CELEBREX [Suspect]
     Indication: ARTHRITIS
     Dosage: 100 MG (100 MG, 1 IN 1 D), ORAL
     Route: 048
     Dates: start: 20000201
  2. ALCOHOL (ETHANOL) [Suspect]
     Indication: ILL-DEFINED DISORDER
  3. VITAMIN E [Concomitant]
  4. VITAMIN C (VITAMIN C) [Concomitant]
  5. CALCIUM (CALCIUM) [Concomitant]
  6. ZOLOFT [Concomitant]
  7. MULTIVITAMIN [Concomitant]
  8. SYNTHROID [Concomitant]
  9. NEXIUM [Concomitant]
  10. DETROL LA [Concomitant]
  11. ZOCOR [Concomitant]

REACTIONS (10)
  - ANAPHYLACTIC REACTION [None]
  - HYPERSENSITIVITY [None]
  - HYPOXIA [None]
  - IMPAIRED HEALING [None]
  - NAUSEA [None]
  - PULSE ABSENT [None]
  - RESPIRATORY DISTRESS [None]
  - RIB FRACTURE [None]
  - TOOTH EXTRACTION [None]
  - URTICARIA [None]
